FAERS Safety Report 7438917-6 (Version None)
Quarter: 2011Q2

REPORT INFORMATION
  Report Type: 
  Country: None (occurrence: None)
  Receive Date: 20110426
  Receipt Date: 20110415
  Transmission Date: 20111010
  Serious: Yes (Hospitalization)
  Sender: FDA-Public Use
  Company Number: CO-GENENTECH-317178

PATIENT
  Sex: Female

DRUGS (1)
  1. MABTHERA [Suspect]
     Indication: AUTOIMMUNE NEUROPATHY
     Dosage: 1000 MG, UNK
     Route: 042
     Dates: start: 20100714

REACTIONS (1)
  - OPTIC NEURITIS [None]
